FAERS Safety Report 6228084-9 (Version None)
Quarter: 2009Q2

REPORT INFORMATION
  Report Type: 
  Country: None (occurrence: None)
  Receive Date: 20090612
  Receipt Date: 20090604
  Transmission Date: 20091009
  Serious: Yes (Death)
  Sender: FDA-Public Use
  Company Number: DE-WATSON-2009-04135

PATIENT
  Age: 75 Year
  Sex: Female

DRUGS (1)
  1. CABERGOLINE (WATSON LABORATORIES) [Suspect]
     Indication: PARKINSON'S DISEASE
     Dosage: 4 MG, DAILY FOR SIX YEARS
     Route: 048

REACTIONS (2)
  - CARDIOGENIC SHOCK [None]
  - HEART VALVE INCOMPETENCE [None]
